FAERS Safety Report 6670576-2 (Version None)
Quarter: 2010Q2

REPORT INFORMATION
  Report Type: 
  Country: None (occurrence: None)
  Receive Date: 20100407
  Receipt Date: 20100324
  Transmission Date: 20101027
  Serious: Yes (Other)
  Sender: FDA-Public Use
  Company Number: GB-RANBAXY-2010RR-32901

PATIENT
  Age: 37 Year
  Sex: Female

DRUGS (2)
  1. GABAPENTIN [Suspect]
     Dosage: 300 MG, TID
     Route: 048
     Dates: start: 20100209, end: 20100309
  2. AMITRIPTYLINE HCL [Concomitant]
     Indication: PAIN
     Dosage: 25 MG, UNK
     Route: 048

REACTIONS (2)
  - CONFUSIONAL STATE [None]
  - IRRITABILITY [None]
